FAERS Safety Report 4752763-3 (Version None)
Quarter: 2005Q3

REPORT INFORMATION
  Report Type: 
  Country: None (occurrence: None)
  Receive Date: 20050823
  Receipt Date: 20050815
  Transmission Date: 20060218
  Serious: Yes (Other)
  Sender: FDA-Public Use
  Company Number: 2005105557

PATIENT
  Age: 68 Year
  Sex: Male
  Weight: 97.5234 kg

DRUGS (5)
  1. CELEBREX [Suspect]
     Indication: ARTHRITIS
     Dosage: 200 MG (100 MG, 1 IN 1D), ORAL
     Route: 048
  2. ZOCOR [Suspect]
     Indication: BLOOD CHOLESTEROL
     Dosage: 20 MG (20 MG, 1 IN 1 D), ORAL
     Route: 048
  3. TOPROL (METOPROLOL) [Concomitant]
  4. DOXEPIN HCL [Concomitant]
  5. ZANTAC [Concomitant]

REACTIONS (4)
  - ARTHRITIS [None]
  - BURNING SENSATION [None]
  - DIFFICULTY IN WALKING [None]
  - MYALGIA [None]
